FAERS Safety Report 12877278 (Version 1)
Quarter: 2016Q4

REPORT INFORMATION
  Report Type: Spontaneous
  Country: US (occurrence: US)
  Receive Date: 20161021
  Receipt Date: 20161021
  Transmission Date: 20170207
  Serious: Yes (Other)
  Sender: FDA-Public Use
  Company Number: None

PATIENT
  Age: 55 Year
  Sex: Female

DRUGS (1)
  1. GILENYA [Suspect]
     Active Substance: FINGOLIMOD HYDROCHLORIDE
     Indication: MULTIPLE SCLEROSIS
     Route: 048
     Dates: start: 20160804

REACTIONS (6)
  - Myalgia [None]
  - Vomiting [None]
  - Urticaria [None]
  - Nausea [None]
  - Vertigo [None]
  - Migraine [None]

NARRATIVE: CASE EVENT DATE: 20160930
